FAERS Safety Report 18367449 (Version 4)
Quarter: 2020Q4

REPORT INFORMATION
  Report Type: Spontaneous
  Country: US (occurrence: US)
  Receive Date: 20201009
  Receipt Date: 20201216
  Transmission Date: 20210114
  Serious: Yes (Other)
  Sender: FDA-Public Use
  Company Number: US-SA-2015SA175631

PATIENT

DRUGS (2)
  1. LANTUS [Suspect]
     Active Substance: INSULIN GLARGINE
     Indication: TYPE 1 DIABETES MELLITUS
     Dosage: 24 IU AND 10 IU, BID
     Route: 065
     Dates: start: 2014
  2. LANTUS [Suspect]
     Active Substance: INSULIN GLARGINE
     Dosage: 27 IU AM AND 6 TO 8 IU PM, BID
     Route: 065

REACTIONS (6)
  - Diabetes mellitus inadequate control [Unknown]
  - Blood glucose increased [Unknown]
  - Product quality issue [Unknown]
  - Inappropriate schedule of product administration [Unknown]
  - Drug ineffective [Unknown]
  - Injection site rash [Unknown]
